FAERS Safety Report 14209820 (Version 2)
Quarter: 2018Q1

REPORT INFORMATION
  Report Type: Spontaneous
  Country: US (occurrence: US)
  Receive Date: 20171121
  Receipt Date: 20180105
  Transmission Date: 20180508
  Serious: No
  Sender: FDA-Public Use
  Company Number: US-PFIZER INC-2017501163

PATIENT
  Age: 69 Year
  Sex: Female

DRUGS (1)
  1. MEDROL [Suspect]
     Active Substance: METHYLPREDNISOLONE
     Indication: HYPERSENSITIVITY
     Dosage: 4 MG, TOOK 2 BEFORE BREAKFAST 1 AFTER LUNCH AND 1 AFTER DINNER, 2 AT BEDTIME
     Dates: start: 20171110, end: 20171115

REACTIONS (5)
  - Nausea [Recovered/Resolved]
  - Product physical issue [Recovered/Resolved]
  - Product quality issue [Recovered/Resolved]
  - Product taste abnormal [Recovered/Resolved]
  - Product use issue [Recovered/Resolved]

NARRATIVE: CASE EVENT DATE: 20171110
